FAERS Safety Report 5159868-6 (Version None)
Quarter: 2006Q4

REPORT INFORMATION
  Report Type: 
  Country: None (occurrence: None)
  Receive Date: 20061129
  Receipt Date: 20060317
  Transmission Date: 20070319
  Serious: No
  Sender: FDA-Public Use
  Company Number: US-GLAXOSMITHKLINE-A0598049A

PATIENT
  Age: 46 Year
  Sex: Female

DRUGS (1)
  1. WELLBUTRIN SR [Suspect]
     Route: 048
     Dates: start: 20050101, end: 20050101

REACTIONS (1)
  - DRUG INEFFECTIVE [None]
